FAERS Safety Report 6048850-2 (Version None)
Quarter: 2009Q1

REPORT INFORMATION
  Report Type: 
  Country: None (occurrence: None)
  Receive Date: 20090123
  Receipt Date: 20090121
  Transmission Date: 20090719
  Serious: Yes (Life-Threatening, Other)
  Sender: FDA-Public Use
  Company Number: US-JNJFOC-20080700275

PATIENT
  Sex: Male

DRUGS (2)
  1. RISPERDAL CONSTA [Suspect]
     Indication: DRUG USE FOR UNKNOWN INDICATION
     Route: 030
  2. PROLIXIN [Suspect]
     Indication: DRUG USE FOR UNKNOWN INDICATION

REACTIONS (8)
  - COLON CANCER [None]
  - HEPATIC NEOPLASM MALIGNANT [None]
  - LYMPHADENOPATHY [None]
  - NASAL CAVITY CANCER [None]
  - OEDEMA [None]
  - PANCREATIC CARCINOMA [None]
  - TREMOR [None]
  - VENOUS INSUFFICIENCY [None]
